FAERS Safety Report 19077022 (Version 1)
Quarter: 2021Q1

REPORT INFORMATION
  Report Type: Spontaneous
  Country: US (occurrence: US)
  Receive Date: 20210330
  Receipt Date: 20210330
  Transmission Date: 20210420
  Serious: Yes (Hospitalization)
  Sender: FDA-Public Use
  Company Number: None

PATIENT
  Age: 77 Year
  Sex: Female

DRUGS (8)
  1. DOFETILIDE. [Suspect]
     Active Substance: DOFETILIDE
     Route: 048
     Dates: start: 20180110
  2. XARELTO [Concomitant]
     Active Substance: RIVAROXABAN
  3. HYDROXYUREA. [Concomitant]
     Active Substance: HYDROXYUREA
  4. SPIRONALACTONE [Concomitant]
     Active Substance: SPIRONOLACTONE
  5. LEVOTHYROXINE. [Concomitant]
     Active Substance: LEVOTHYROXINE
  6. ROSUVASTATIN. [Concomitant]
     Active Substance: ROSUVASTATIN
  7. NORPACE [Concomitant]
     Active Substance: DISOPYRAMIDE PHOSPHATE
  8. CYANOCOBALAMIN. [Concomitant]
     Active Substance: CYANOCOBALAMIN

REACTIONS (1)
  - Hospitalisation [None]
